FAERS Safety Report 8874274 (Version 2)
Quarter: 2013Q1

REPORT INFORMATION
  Report Type: Spontaneous
  Country: FR (occurrence: FR)
  Receive Date: 20121030
  Receipt Date: 20130109
  Transmission Date: 20140127
  Serious: Yes (Death)
  Sender: FDA-Public Use
  Company Number: FR-PFIZER INC-2012264599

PATIENT
  Age: 37 Year
  Sex: Male

DRUGS (8)
  1. LYRICA [Suspect]
     Dosage: 200 MG, 2X/DAY
     Route: 048
     Dates: end: 20120826
  2. DEROXAT [Suspect]
     Dosage: 50 MG, 1X/DAY
     Route: 048
     Dates: end: 20120826
  3. METHADONE [Suspect]
     Dosage: 40 MG, 1X/DAY
     Route: 048
     Dates: start: 201206, end: 20120826
  4. XEROQUEL [Suspect]
     Dosage: 800 MG, 1X/DAY
     Dates: start: 201111, end: 20120826
  5. NOZINAN [Suspect]
     Dosage: 10 GTT, 2X/DAY
     Route: 048
     Dates: start: 201207, end: 20120826
  6. VALIUM [Suspect]
     Dosage: 40 MG, 1X/DAY
     Route: 048
     Dates: end: 20120826
  7. VENTOLINE [Suspect]
     Indication: INHALATION THERAPY
     Dosage: UNK
     Dates: end: 20120826
  8. FORLAX [Suspect]
     Dosage: 2 DF, 1X/DAY
     Route: 048
     Dates: end: 20120826

REACTIONS (1)
  - Death [Fatal]
